FAERS Safety Report 10451660 (Version 3)
Quarter: 2015Q1

REPORT INFORMATION
  Report Type: Spontaneous
  Country: JP (occurrence: JP)
  Receive Date: 20140915
  Receipt Date: 20150107
  Transmission Date: 20150720
  Serious: Yes (Hospitalization, Other)
  Sender: FDA-Public Use
  Company Number: JP-AMGEN-JPNSP2014069646

PATIENT
  Age: 73 Year
  Sex: Male
  Weight: 57 kg

DRUGS (8)
  1. FLUOROURACIL. [Concomitant]
     Active Substance: FLUOROURACIL
     Dosage: 4000 MG, UNK
     Route: 041
     Dates: start: 201311
  2. ELPLAT [Suspect]
     Active Substance: OXALIPLATIN
     Indication: COLON CANCER
     Dosage: 140 MG, UNK
     Route: 041
     Dates: start: 201311
  3. FLUOROURACIL. [Concomitant]
     Active Substance: FLUOROURACIL
     Indication: COLON CANCER
     Dosage: 650 MG, UNK
     Route: 040
     Dates: start: 201311
  4. CALCIUM LEVOFOLINATE [Concomitant]
     Active Substance: LEVOLEUCOVORIN CALCIUM
     Indication: COLON CANCER
     Dosage: 325 MG, UNK
     Route: 041
     Dates: start: 201311
  5. FLUOROURACIL. [Concomitant]
     Active Substance: FLUOROURACIL
     Dosage: 3950 MG, UNK
     Route: 041
  6. CALCICOL [Concomitant]
     Active Substance: CALCIUM GLUCONATE
     Indication: PROPHYLAXIS
     Dosage: UNK
     Route: 041
     Dates: start: 201311
  7. VECTIBIX [Suspect]
     Active Substance: PANITUMUMAB
     Indication: COLON CANCER
     Dosage: 350 MG, UNK
     Route: 041
  8. MAGNESIUM SULFATE. [Concomitant]
     Active Substance: MAGNESIUM SULFATE
     Indication: PROPHYLAXIS
     Dosage: UNK
     Route: 041

REACTIONS (10)
  - Interstitial lung disease [Recovering/Resolving]
  - Dry skin [Unknown]
  - Hypomagnesaemia [Unknown]
  - Pigmentation disorder [Unknown]
  - Stomatitis [Unknown]
  - Diarrhoea [Unknown]
  - Dysgeusia [Unknown]
  - Paronychia [Unknown]
  - Neuropathy peripheral [Unknown]
  - Dermatitis acneiform [Unknown]

NARRATIVE: CASE EVENT DATE: 20140821
